FAERS Safety Report 8057941-6 (Version None)
Quarter: 2012Q1

REPORT INFORMATION
  Report Type: 
  Country: None (occurrence: None)
  Receive Date: 20120120
  Receipt Date: 20120117
  Transmission Date: 20120608
  Serious: No
  Sender: FDA-Public Use
  Company Number: US-PFIZER INC-2012014025

PATIENT
  Sex: Male

DRUGS (4)
  1. LIPITOR [Suspect]
     Dosage: UNK
  2. CARDURA [Suspect]
     Dosage: UNK
  3. NORVASC [Suspect]
     Dosage: UNK
  4. ZOLOFT [Suspect]
     Dosage: UNK

REACTIONS (2)
  - DRUG DOSE OMISSION [None]
  - MALAISE [None]
